FAERS Safety Report 8200521 (Version 3)
Quarter: 2013Q1

REPORT INFORMATION
  Report Type: Spontaneous
  Country: US (occurrence: US)
  Receive Date: 20111026
  Receipt Date: 20130116
  Transmission Date: 20140127
  Serious: Yes (Life-Threatening, Hospitalization, Other)
  Sender: FDA-Public Use
  Company Number: US-ASTRAZENECA-2011SE62634

PATIENT
  Age: 87 Year
  Sex: Female

DRUGS (7)
  1. NEXIUM [Suspect]
     Route: 048
  2. MUCINEX [Concomitant]
  3. LASIX [Concomitant]
  4. BLOOD PRESSURE PILL [Concomitant]
  5. BUMETANIDE [Concomitant]
  6. WATER PILL [Concomitant]
  7. XANAX [Concomitant]
     Indication: PERSONALITY DISORDER

REACTIONS (15)
  - Apparent death [Unknown]
  - Cardiac failure congestive [Unknown]
  - Hypertension [Unknown]
  - Hernia [Unknown]
  - Perforated ulcer [Unknown]
  - Productive cough [Unknown]
  - Gastrooesophageal reflux disease [Unknown]
  - Hearing impaired [Unknown]
  - Acne [Unknown]
  - Asthma [Unknown]
  - Swelling [Unknown]
  - Bronchitis [Unknown]
  - Nasopharyngitis [Unknown]
  - Ulcer [Unknown]
  - Hypersensitivity [Unknown]
